FAERS Safety Report 7032087-4 (Version None)
Quarter: 2010Q4

REPORT INFORMATION
  Report Type: 
  Country: None (occurrence: None)
  Receive Date: 20101007
  Receipt Date: 20091001
  Transmission Date: 20110411
  Serious: No
  Sender: FDA-Public Use
  Company Number: US-KINGPHARMUSA00001-K200901215

PATIENT
  Age: 55 Year
  Sex: Female
  Weight: 47.6 kg

DRUGS (6)
  1. SONATA [Suspect]
     Indication: INSOMNIA
     Dosage: UNK
     Route: 048
  2. XANAX [Concomitant]
  3. LOVASTATIN [Concomitant]
  4. CITALOPRAM HYDROBROMIDE [Concomitant]
  5. ASPIRIN [Concomitant]
  6. VITAMINS [Concomitant]

REACTIONS (1)
  - DRUG INEFFECTIVE [None]
